FAERS Safety Report 15961905 (Version 1)
Quarter: 2019Q1

REPORT INFORMATION
  Report Type: Spontaneous
  Country: US (occurrence: US)
  Receive Date: 20190123
  Receipt Date: 20190123
  Transmission Date: 20190417
  Serious: No
  Sender: FDA-Public Use
  Company Number: None

PATIENT
  Age: 75 Year
  Sex: Female

DRUGS (7)
  1. ESBRIET [Suspect]
     Active Substance: PIRFENIDONE
     Route: 048
     Dates: start: 20170413
  2. ASPIRIN. [Concomitant]
     Active Substance: ASPIRIN
  3. ATIVAN [Suspect]
     Active Substance: LORAZEPAM
  4. PEPCID [Concomitant]
     Active Substance: FAMOTIDINE
  5. LASIX [Concomitant]
     Active Substance: FUROSEMIDE
  6. ALEVE [Concomitant]
     Active Substance: NAPROXEN SODIUM
  7. ALENDRONATE [Concomitant]
     Active Substance: ALENDRONATE SODIUM

REACTIONS (1)
  - Bronchiectasis [None]

NARRATIVE: CASE EVENT DATE: 20181221
